FAERS Safety Report 26012003 (Version 1)
Quarter: 2025Q4

REPORT INFORMATION
  Report Type: Spontaneous
  Country: US (occurrence: US)
  Receive Date: 20251107
  Receipt Date: 20251107
  Transmission Date: 20260118
  Serious: No
  Sender: ABBVIE
  Company Number: US-ABBVIE-6529051

PATIENT

DRUGS (1)
  1. KYBELLA [Suspect]
     Active Substance: DEOXYCHOLIC ACID
     Indication: Lipoma
     Dosage: TIME INTERVAL: AS NECESSARY: KYBELLA IS SUPPLIED IN 2ML VIALS. EACH VIAL IS FOR SINGLE PATIENT USE
     Route: 058

REACTIONS (1)
  - Adverse event [Unknown]
